FAERS Safety Report 17820221 (Version 1)
Quarter: 2020Q2

REPORT INFORMATION
  Report Type: Report from Study
  Country: None (occurrence: US)
  Receive Date: 20200525
  Receipt Date: 20200525
  Transmission Date: 20200714
  Serious: Yes (Other)
  Sender: FDA-Public Use
  Company Number: US-ABBVIE-19K-163-2725545-00

PATIENT
  Sex: Female

DRUGS (6)
  1. HUMIRA [Suspect]
     Active Substance: ADALIMUMAB
     Route: 058
     Dates: start: 2020
  2. HUMIRA [Suspect]
     Active Substance: ADALIMUMAB
     Route: 058
     Dates: start: 20190417, end: 201912
  3. BACLOFEN. [Concomitant]
     Active Substance: BACLOFEN
     Indication: PRODUCT USED FOR UNKNOWN INDICATION
  4. HUMIRA [Suspect]
     Active Substance: ADALIMUMAB
     Indication: ANKYLOSING SPONDYLITIS
     Route: 058
     Dates: start: 20190105, end: 2019
  5. HUMIRA [Suspect]
     Active Substance: ADALIMUMAB
     Route: 058
     Dates: start: 20190407, end: 201904
  6. OXYCODONE [Concomitant]
     Active Substance: OXYCODONE
     Indication: PRODUCT USED FOR UNKNOWN INDICATION

REACTIONS (19)
  - Loss of personal independence in daily activities [Not Recovered/Not Resolved]
  - Back pain [Recovering/Resolving]
  - Lower respiratory tract infection [Unknown]
  - Spinal operation [Unknown]
  - Fatigue [Recovering/Resolving]
  - Hypoaesthesia [Not Recovered/Not Resolved]
  - Rotator cuff syndrome [Unknown]
  - Limb operation [Unknown]
  - Dysstasia [Not Recovered/Not Resolved]
  - General physical condition abnormal [Not Recovered/Not Resolved]
  - Hyperhidrosis [Unknown]
  - Nerve compression [Unknown]
  - Joint range of motion decreased [Not Recovered/Not Resolved]
  - Musculoskeletal stiffness [Not Recovered/Not Resolved]
  - Arthralgia [Not Recovered/Not Resolved]
  - Neck pain [Recovering/Resolving]
  - Mobility decreased [Not Recovered/Not Resolved]
  - Pain in extremity [Recovering/Resolving]
  - Tooth extraction [Unknown]

NARRATIVE: CASE EVENT DATE: 2019
